FAERS Safety Report 11836763 (Version 2)
Quarter: 2016Q4

REPORT INFORMATION
  Report Type: Report from Study
  Country: US (occurrence: US)
  Receive Date: 20151215
  Receipt Date: 20161230
  Transmission Date: 20170206
  Serious: No
  Sender: FDA-Public Use
  Company Number: PHEH2015US026117

PATIENT
  Age: 40 Year
  Sex: Female

DRUGS (2)
  1. TOBI PODHALER [Suspect]
     Active Substance: TOBRAMYCIN
     Indication: PSEUDOMONAS INFECTION
     Dosage: 300 MG, BID
     Route: 045
     Dates: start: 20151211
  2. TOBI PODHALER [Suspect]
     Active Substance: TOBRAMYCIN
     Indication: ACCIDENT
     Dosage: 112 MG, BID
     Route: 055

REACTIONS (2)
  - Product use issue [Unknown]
  - Drug intolerance [Unknown]

NARRATIVE: CASE EVENT DATE: 20151211
